FAERS Safety Report 7382560-4 (Version None)
Quarter: 2011Q1

REPORT INFORMATION
  Report Type: 
  Country: None (occurrence: None)
  Receive Date: 20110329
  Receipt Date: 20110324
  Transmission Date: 20110831
  Serious: Yes (Other)
  Sender: FDA-Public Use
  Company Number: US-BAYER-2011-026635

PATIENT
  Sex: Female

DRUGS (4)
  1. ALEVE (CAPLET) [Suspect]
     Dosage: COUNT BOTTLE UNKNOWN
     Route: 048
     Dates: start: 20110101
  2. ZYRTEC [Concomitant]
     Dosage: 2-3 DF/DAY
  3. ALEVE (CAPLET) [Suspect]
     Dosage: COUNT BOTTLE UNKNOWN
     Route: 048
     Dates: end: 20110321
  4. ZYRTEC [Concomitant]
     Dosage: DAILY DOSE 1 DF

REACTIONS (9)
  - BLISTER [None]
  - URINE OUTPUT DECREASED [None]
  - RENAL DISORDER [None]
  - WEIGHT INCREASED [None]
  - BREAST CANCER [None]
  - OEDEMA PERIPHERAL [None]
  - URINARY TRACT INFECTION [None]
  - DYSPNOEA [None]
  - JOINT SWELLING [None]
